FAERS Safety Report 18816721 (Version 2)
Quarter: 2021Q3

REPORT INFORMATION
  Report Type: Spontaneous
  Country: JP (occurrence: JP)
  Receive Date: 20210201
  Receipt Date: 20210705
  Transmission Date: 20211014
  Serious: Yes (Other)
  Sender: FDA-Public Use
  Company Number: JP-JNJFOC-20210146151

PATIENT

DRUGS (3)
  1. DEXAMETHASONE. [Concomitant]
     Active Substance: DEXAMETHASONE
     Dosage: DOSE UNKNOWN
     Route: 065
  2. CARFILZOMIB [Suspect]
     Active Substance: CARFILZOMIB
     Dosage: DOSE UNKNOWN
     Route: 041
  3. DARZALEX [Suspect]
     Active Substance: DARATUMUMAB
     Indication: PRODUCT USED FOR UNKNOWN INDICATION
     Dosage: DOSE UNKNOWN
     Route: 041

REACTIONS (1)
  - Cardiac dysfunction [Unknown]
